FAERS Safety Report 15617318 (Version 1)
Quarter: 2018Q4

REPORT INFORMATION
  Report Type: Spontaneous
  Country: US (occurrence: US)
  Receive Date: 20181112
  Receipt Date: 20181112
  Transmission Date: 20190205
  Serious: Yes (Other)
  Sender: FDA-Public Use
  Company Number: None

PATIENT
  Age: 89 Year
  Sex: Male
  Weight: 82.35 kg

DRUGS (20)
  1. HYDROCODONE-ACETAMINOPHEN [Concomitant]
     Active Substance: ACETAMINOPHEN\HYDROCODONE
  2. ASPIRIN. [Concomitant]
     Active Substance: ASPIRIN
  3. OCUVITE ADULT FORMULA [Concomitant]
  4. TYLENOL [Concomitant]
     Active Substance: ACETAMINOPHEN
  5. NAMENDA [Concomitant]
     Active Substance: MEMANTINE HYDROCHLORIDE
  6. SENNA [Concomitant]
     Active Substance: SENNA LEAF\SENNOSIDES\SENNOSIDES A AND B
  7. BACLOFEN. [Concomitant]
     Active Substance: BACLOFEN
  8. KEFLEX [Concomitant]
     Active Substance: CEPHALEXIN
  9. ATORVASTATIN [Concomitant]
     Active Substance: ATORVASTATIN
  10. CLARITIN [Concomitant]
     Active Substance: LORATADINE
  11. MAALOX ANTACID [Concomitant]
     Active Substance: ALUMINUM HYDROXIDE\DIMETHICONE\MAGNESIUM HYDROXIDE
  12. MIADERM RADIATION RELIEF [Concomitant]
  13. POLYETHYLENE GLYCOL 1000 [Concomitant]
     Active Substance: POLYETHYLENE GLYCOL 1000
  14. TYLENOL WITH CODEINE [Concomitant]
     Active Substance: ACETAMINOPHEN\CODEINE PHOSPHATE
  15. METOPROLOL. [Concomitant]
     Active Substance: METOPROLOL
  16. VITAMIN B12 [Concomitant]
     Active Substance: CYANOCOBALAMIN
  17. MELPHALAN. [Suspect]
     Active Substance: MELPHALAN
     Indication: PLASMA CELL MYELOMA
     Route: 048
     Dates: start: 20180813
  18. LORAZEPAM. [Concomitant]
     Active Substance: LORAZEPAM
  19. FAMOTIDINE. [Concomitant]
     Active Substance: FAMOTIDINE
  20. LIDOCAINE. [Concomitant]
     Active Substance: LIDOCAINE

REACTIONS (1)
  - Ill-defined disorder [None]

NARRATIVE: CASE EVENT DATE: 20181112
